FAERS Safety Report 23827154 (Version 1)
Quarter: 2024Q2

REPORT INFORMATION
  Report Type: Spontaneous
  Country: US (occurrence: US)
  Receive Date: 20240507
  Receipt Date: 20240507
  Transmission Date: 20240717
  Serious: No
  Sender: FDA-Public Use
  Company Number: US-GLENMARK PHARMACEUTICALS-2024GMK089382

PATIENT

DRUGS (4)
  1. RYALTRIS [Suspect]
     Active Substance: MOMETASONE FUROATE MONOHYDRATE\OLOPATADINE HYDROCHLORIDE
     Indication: Hypersensitivity
     Dosage: 2 DOSAGE FORM, OD (2 SPRAYS IN EACH NOSTRIL ONCE DAILY (EVENING))
     Route: 045
  2. RYALTRIS [Suspect]
     Active Substance: MOMETASONE FUROATE MONOHYDRATE\OLOPATADINE HYDROCHLORIDE
     Indication: Sneezing
  3. RYALTRIS [Suspect]
     Active Substance: MOMETASONE FUROATE MONOHYDRATE\OLOPATADINE HYDROCHLORIDE
     Indication: Cough
  4. SINGULAIR [Concomitant]
     Active Substance: MONTELUKAST SODIUM
     Indication: Sinusitis
     Dosage: UNK, OD IN THE EVENING
     Route: 065

REACTIONS (5)
  - Arthralgia [Unknown]
  - Myalgia [Not Recovered/Not Resolved]
  - Bone pain [Unknown]
  - Product use in unapproved indication [Unknown]
  - Product use issue [Unknown]
